FAERS Safety Report 8286569-8 (Version None)
Quarter: 2012Q2

REPORT INFORMATION
  Report Type: 
  Country: None (occurrence: None)
  Receive Date: 20120411
  Receipt Date: 20120327
  Transmission Date: 20120825
  Serious: Yes (Hospitalization)
  Sender: FDA-Public Use
  Company Number: TPA2012A01893

PATIENT
  Age: 81 Year
  Sex: Male

DRUGS (4)
  1. PANTOPRAZOLE SODIUM [Concomitant]
  2. ATACAND PLUS (HYDROCHLOROTHIAZIDE, CANDESARTAN CILEXETIL) [Concomitant]
  3. ADENURIC (FEBUXOSTAT) [Suspect]
     Indication: GOUT
     Dosage: 80 MG (80 MG, 1 IN 1 D), ORAL
     Route: 048
     Dates: start: 20120101, end: 20120301
  4. SIMVA (SIMVASTATIN) [Concomitant]

REACTIONS (4)
  - RENAL FAILURE ACUTE [None]
  - HYPONATRAEMIA [None]
  - DIABETES MELLITUS [None]
  - CONDITION AGGRAVATED [None]
